FAERS Safety Report 23043851 (Version 4)
Quarter: 2024Q2

REPORT INFORMATION
  Report Type: Report from Study
  Country: US (occurrence: US)
  Receive Date: 20231009
  Receipt Date: 20240510
  Transmission Date: 20240716
  Serious: No
  Sender: FDA-Public Use
  Company Number: US-ACADIA PHARMACEUTICALS INC.-ACA-2023-TRF-004084

PATIENT
  Sex: Female

DRUGS (4)
  1. DAYBUE [Suspect]
     Active Substance: TROFINETIDE
     Indication: Rett syndrome
     Dosage: 10 MILLILITER
     Route: 065
     Dates: start: 202308
  2. DAYBUE [Suspect]
     Active Substance: TROFINETIDE
     Dosage: 14 MILLILITER
     Route: 065
  3. DAYBUE [Suspect]
     Active Substance: TROFINETIDE
     Dosage: LOWER DOSE
     Route: 065
  4. DAYBUE [Suspect]
     Active Substance: TROFINETIDE
     Dosage: 18 MILLILITER
     Route: 065

REACTIONS (17)
  - Retching [Recovering/Resolving]
  - Retching [Unknown]
  - Drug effect less than expected [Unknown]
  - Bruxism [Unknown]
  - Product dose omission issue [Unknown]
  - Somnolence [Unknown]
  - Underdose [Not Recovered/Not Resolved]
  - Product dose omission issue [Unknown]
  - Irritability [Unknown]
  - Flatulence [Unknown]
  - Constipation [Unknown]
  - Bruxism [Unknown]
  - Insomnia [Unknown]
  - Product dose omission issue [Unknown]
  - Diarrhoea [Unknown]
  - Diarrhoea [Recovering/Resolving]
  - Diarrhoea [Unknown]
